FAERS Safety Report 5911816-4 (Version None)
Quarter: 2008Q4

REPORT INFORMATION
  Report Type: 
  Country: None (occurrence: None)
  Receive Date: 20081003
  Receipt Date: 20080917
  Transmission Date: 20090506
  Serious: Yes (Death, Hospitalization)
  Sender: FDA-Public Use
  Company Number: DSA_28930_2006

PATIENT
  Age: 83 Year
  Sex: Female

DRUGS (6)
  1. ENALAPRIL MALEATE [Suspect]
     Indication: HYPERTENSION
     Dosage: (30 MG QD ORAL)
     Route: 048
     Dates: end: 20060501
  2. SPIRONOLACTONE [Suspect]
     Indication: HYPERTENSION
     Dosage: (25 MG QD ORAL)
     Route: 048
     Dates: end: 20060501
  3. FUROSEMIDE [Suspect]
     Indication: HYPERTENSION
     Dosage: (80 MG QD ORAL), (20 MG QD ORAL)
     Route: 048
     Dates: end: 20060501
  4. FUROSEMIDE [Suspect]
     Indication: HYPERTENSION
     Dosage: (80 MG QD ORAL), (20 MG QD ORAL)
     Route: 048
     Dates: start: 20061001
  5. POTASSIUM CHLORIDE [Suspect]
     Indication: PROPHYLAXIS
     Dosage: (600 MG BID ORAL)
     Route: 048
     Dates: end: 20060501
  6. LEVOTHYROXINE SODIUM [Concomitant]

REACTIONS (6)
  - CARDIAC FAILURE [None]
  - DEHYDRATION [None]
  - FALL [None]
  - GASTROENTERITIS [None]
  - HYPERKALAEMIA [None]
  - RENAL FAILURE ACUTE [None]
